FAERS Safety Report 8153269-4 (Version None)
Quarter: 2012Q1

REPORT INFORMATION
  Report Type: 
  Country: None (occurrence: None)
  Receive Date: 20120221
  Receipt Date: 20120219
  Transmission Date: 20120608
  Serious: Yes (Other)
  Sender: FDA-Public Use
  Company Number: AU-ROCHE-1041682

PATIENT
  Age: 60 Year
  Sex: Female

DRUGS (4)
  1. XELODA [Suspect]
     Indication: BREAST CANCER METASTATIC
     Dates: start: 20110101
  2. LAPATINIB [Concomitant]
     Indication: BREAST CANCER METASTATIC
     Dates: start: 20110101
  3. PACLITAXEL [Concomitant]
     Indication: BREAST CANCER METASTATIC
     Dates: start: 20090101
  4. HERCEPTIN [Suspect]
     Indication: BREAST CANCER METASTATIC
     Dates: start: 20090101

REACTIONS (1)
  - DISEASE PROGRESSION [None]
